FAERS Safety Report 5848248-3 (Version None)
Quarter: 2008Q3

REPORT INFORMATION
  Report Type: 
  Country: None (occurrence: None)
  Receive Date: 20080818
  Receipt Date: 20080812
  Transmission Date: 20090109
  Serious: Yes (Life-Threatening, Other)
  Sender: FDA-Public Use
  Company Number: JP-BRISTOL-MYERS SQUIBB COMPANY-14184964

PATIENT
  Age: 65 Year
  Sex: Female

DRUGS (5)
  1. TAXOL [Suspect]
     Indication: UTERINE CANCER
     Dosage: 9APR08: CYCLE 2 TREATMENT OF TAXOL (180MG / M2)+ CARBOPLATIN (AUC 6/BODY) THERAPY PERFORMED.
     Route: 041
     Dates: start: 20080319, end: 20080319
  2. PARAPLATIN [Suspect]
     Indication: UTERINE CANCER
     Dosage: 9-APR-2008 CYCLE 2 TREATMENT OF TAXOL (180MG / M2) + CARBOPLATIN (AUC 6/BODY) THERAPY PERFORMED.
     Route: 041
     Dates: start: 20080319, end: 20080319
  3. DECADRON SRC [Concomitant]
     Indication: PREMEDICATION
     Route: 042
     Dates: start: 20080319, end: 20080409
  4. VENA [Concomitant]
     Indication: PREMEDICATION
     Route: 048
     Dates: start: 20080319, end: 20080409
  5. RANITIDINE [Concomitant]
     Indication: PREMEDICATION
     Route: 042
     Dates: start: 20080319, end: 20080409

REACTIONS (3)
  - LIVER DISORDER [None]
  - NEUTROPHIL COUNT DECREASED [None]
  - WHITE BLOOD CELL COUNT DECREASED [None]
